FAERS Safety Report 12462036 (Version 3)
Quarter: 2016Q3

REPORT INFORMATION
  Report Type: Report from Study
  Country: CA (occurrence: CA)
  Receive Date: 20160613
  Receipt Date: 20160713
  Transmission Date: 20161109
  Serious: Yes (Death, Hospitalization)
  Sender: FDA-Public Use
  Company Number: CA-B.I. PHARMACEUTICALS,INC./RIDGEFIELD-2016-BI-20943II

PATIENT
  Age: 56 Year
  Sex: Female
  Weight: 75 kg

DRUGS (8)
  1. ENALAPRIL [Concomitant]
     Active Substance: ENALAPRIL
     Indication: PRODUCT USED FOR UNKNOWN INDICATION
     Dosage: 10 MG
     Route: 048
     Dates: end: 20160310
  2. FUROSEMIDE. [Concomitant]
     Active Substance: FUROSEMIDE
     Indication: PRODUCT USED FOR UNKNOWN INDICATION
     Route: 048
     Dates: end: 20160310
  3. DABIGATRAN [Suspect]
     Active Substance: DABIGATRAN
     Indication: POST PROCEDURAL MYOCARDIAL INFARCTION
     Dosage: 220 MG
     Route: 048
     Dates: start: 20151217, end: 20160304
  4. ARIMIDEX [Suspect]
     Active Substance: ANASTROZOLE
     Indication: PRODUCT USED FOR UNKNOWN INDICATION
     Route: 065
  5. OMEPRAZOLE. [Concomitant]
     Active Substance: OMEPRAZOLE
     Indication: POST PROCEDURAL MYOCARDIAL INFARCTION
     Dosage: 20 MG
     Route: 048
     Dates: start: 20150312, end: 20160307
  6. AMLODIPIN [Concomitant]
     Active Substance: AMLODIPINE BESYLATE
     Indication: PRODUCT USED FOR UNKNOWN INDICATION
     Dosage: 10 MG
     Route: 048
     Dates: end: 20160310
  7. MORPHINE [Concomitant]
     Active Substance: MORPHINE
     Indication: PRODUCT USED FOR UNKNOWN INDICATION
     Dosage: 20 MG/5ML
     Route: 058
     Dates: end: 20160319
  8. ANASTROZOLE. [Concomitant]
     Active Substance: ANASTROZOLE
     Indication: PRODUCT USED FOR UNKNOWN INDICATION
     Dosage: 1 MG
     Route: 048
     Dates: end: 20160310

REACTIONS (3)
  - Drug hypersensitivity [Fatal]
  - Drug-induced liver injury [Fatal]
  - Hepatotoxicity [Fatal]

NARRATIVE: CASE EVENT DATE: 20160301
